FAERS Safety Report 25381220 (Version 5)
Quarter: 2025Q3

REPORT INFORMATION
  Report Type: Other
  Country: US (occurrence: US)
  Receive Date: 20250530
  Receipt Date: 20250918
  Transmission Date: 20251021
  Serious: Yes (Hospitalization, Other)
  Sender: TRAVERE THERAPEUTICS
  Company Number: US-TRAVERE-2025TVT00791

PATIENT
  Age: 78 Year
  Sex: Male

DRUGS (5)
  1. FILSPARI [Suspect]
     Active Substance: SPARSENTAN
     Indication: IgA nephropathy
     Route: 048
     Dates: start: 20250411
  2. FILSPARI [Suspect]
     Active Substance: SPARSENTAN
     Route: 048
     Dates: start: 20250425
  3. FILSPARI [Suspect]
     Active Substance: SPARSENTAN
     Dosage: BREAK IN HALF 400 MG
     Route: 048
     Dates: start: 202506
  4. FILSPARI [Suspect]
     Active Substance: SPARSENTAN
     Route: 048
  5. TARPEYO [Suspect]
     Active Substance: BUDESONIDE
     Indication: Product used for unknown indication

REACTIONS (8)
  - Dyspnoea [None]
  - Hypotension [Recovered/Resolved]
  - Chest pain [None]
  - Benign neoplasm of prostate [Unknown]
  - Peripheral swelling [None]
  - Chest discomfort [Unknown]
  - Off label use [Unknown]
  - Joint swelling [Unknown]

NARRATIVE: CASE EVENT DATE: 20250501
